FAERS Safety Report 25683224 (Version 2)
Quarter: 2025Q4

REPORT INFORMATION
  Report Type: Report from Study
  Country: EU (occurrence: EU)
  Receive Date: 20250814
  Receipt Date: 20251103
  Transmission Date: 20260119
  Serious: No
  Sender: VERTEX
  Company Number: EU-VERTEX PHARMACEUTICALS-2025-013380

PATIENT
  Age: 14 Year
  Sex: Male

DRUGS (1)
  1. CASGEVY [Suspect]
     Active Substance: EXAGAMGLOGENE AUTOTEMCEL
     Indication: Thalassaemia beta
     Dosage: UNK
     Route: 042
     Dates: start: 20250729

REACTIONS (2)
  - Asthenia [Recovered/Resolved]
  - Fatigue [Recovered/Resolved]

NARRATIVE: CASE EVENT DATE: 20250801
